FAERS Safety Report 19090411 (Version 1)
Quarter: 2021Q2

REPORT INFORMATION
  Report Type: Other
  Country: IT (occurrence: IT)
  Receive Date: 20210405
  Receipt Date: 20210405
  Transmission Date: 20210717
  Serious: Yes (Other)
  Sender: FDA-Public Use
  Company Number: IT-VKT PHARMA PRIVATE LIMITED-000009

PATIENT
  Age: 77 Year
  Sex: Female

DRUGS (2)
  1. LEVETIRACETAM. [Suspect]
     Active Substance: LEVETIRACETAM
     Indication: ATRIAL FIBRILLATION
     Dosage: 250 MG BID
  2. APIXABAN [Interacting]
     Active Substance: APIXABAN
     Indication: ATRIAL FIBRILLATION
     Dosage: 5 MG BID

REACTIONS (2)
  - Ischaemic stroke [Unknown]
  - Drug interaction [Unknown]
